FAERS Safety Report 9001499 (Version 1)
Quarter: 2013Q1

REPORT INFORMATION
  Report Type: Spontaneous
  Country: US (occurrence: US)
  Receive Date: 20130107
  Receipt Date: 20130107
  Transmission Date: 20140127
  Serious: Yes (Hospitalization)
  Sender: FDA-Public Use
  Company Number: US-GILEAD-2013-0067290

PATIENT
  Sex: Female

DRUGS (9)
  1. LETAIRIS [Suspect]
     Indication: PRODUCT USED FOR UNKNOWN INDICATION
     Route: 048
     Dates: start: 20120829, end: 20121224
  2. AMLODIPINE [Concomitant]
  3. FERROUS SULFATE [Concomitant]
  4. LISINOPRIL [Concomitant]
  5. ATORVASTATIN [Concomitant]
  6. RENVELA [Concomitant]
  7. CALCIUM CITRATE [Concomitant]
  8. VITAMIN D NOS [Concomitant]
  9. IRON [Concomitant]

REACTIONS (1)
  - Anuria [Unknown]
